FAERS Safety Report 7290933-3 (Version None)
Quarter: 2011Q1

REPORT INFORMATION
  Report Type: 
  Country: None (occurrence: None)
  Receive Date: 20110214
  Receipt Date: 20110208
  Transmission Date: 20110831
  Serious: Yes (Hospitalization, Other)
  Sender: FDA-Public Use
  Company Number: US-JNJFOC-20100805833

PATIENT
  Sex: Female

DRUGS (5)
  1. LEVAQUIN [Suspect]
     Indication: MALAISE
     Route: 048
  2. LEVAQUIN [Suspect]
     Indication: INFLUENZA
     Route: 048
  3. LEVAQUIN [Suspect]
     Indication: RESPIRATORY DISORDER
     Route: 048
  4. LEVAQUIN [Suspect]
     Indication: NASOPHARYNGITIS
     Route: 048
  5. LEVAQUIN [Suspect]
     Indication: INFLAMMATION
     Route: 048

REACTIONS (8)
  - DYSTONIA [None]
  - CARPAL TUNNEL SYNDROME [None]
  - MUSCLE SPASMS [None]
  - ANGIOPATHY [None]
  - TENDON RUPTURE [None]
  - CARDIOVASCULAR DISORDER [None]
  - EYE DISORDER [None]
  - MUSCULOSKELETAL DISORDER [None]
